FAERS Safety Report 15354386 (Version 11)
Quarter: 2025Q1

REPORT INFORMATION
  Report Type: Spontaneous
  Country: CA (occurrence: CA)
  Receive Date: 20180906
  Receipt Date: 20250107
  Transmission Date: 20250408
  Serious: Yes (Other)
  Sender: CELLTRION
  Company Number: CA-CELLTRION INC.-2018CA021623

PATIENT

DRUGS (23)
  1. INFLECTRA [Interacting]
     Active Substance: INFLIXIMAB-DYYB
     Indication: Crohn^s disease
     Route: 042
     Dates: start: 20180707, end: 20190202
  2. INFLECTRA [Interacting]
     Active Substance: INFLIXIMAB-DYYB
     Indication: Colitis ulcerative
     Route: 042
     Dates: start: 20180815
  3. INFLECTRA [Interacting]
     Active Substance: INFLIXIMAB-DYYB
     Route: 042
  4. INFLECTRA [Interacting]
     Active Substance: INFLIXIMAB-DYYB
     Route: 042
     Dates: start: 20181010
  5. INFLECTRA [Interacting]
     Active Substance: INFLIXIMAB-DYYB
     Route: 042
     Dates: start: 20181205
  6. INFLECTRA [Interacting]
     Active Substance: INFLIXIMAB-DYYB
     Route: 042
     Dates: start: 20190206
  7. INFLECTRA [Interacting]
     Active Substance: INFLIXIMAB-DYYB
     Route: 042
     Dates: start: 20190402, end: 20191112
  8. INFLECTRA [Interacting]
     Active Substance: INFLIXIMAB-DYYB
     Route: 042
     Dates: start: 20190707
  9. INFLECTRA [Interacting]
     Active Substance: INFLIXIMAB-DYYB
     Route: 042
     Dates: start: 20190723
  10. INFLECTRA [Interacting]
     Active Substance: INFLIXIMAB-DYYB
     Route: 042
     Dates: start: 20191223
  11. INFLECTRA [Interacting]
     Active Substance: INFLIXIMAB-DYYB
     Route: 042
     Dates: start: 20211026
  12. INFLECTRA [Interacting]
     Active Substance: INFLIXIMAB-DYYB
     Route: 042
     Dates: start: 20211206, end: 20230221
  13. INFLECTRA [Interacting]
     Active Substance: INFLIXIMAB-DYYB
     Route: 042
     Dates: start: 20230422, end: 20230613
  14. INFLECTRA [Interacting]
     Active Substance: INFLIXIMAB-DYYB
     Route: 042
     Dates: start: 20230814
  15. INFLECTRA [Interacting]
     Active Substance: INFLIXIMAB-DYYB
     Route: 042
     Dates: start: 20241224
  16. INFLECTRA [Interacting]
     Active Substance: INFLIXIMAB-DYYB
     Route: 042
     Dates: start: 20241224
  17. CEFUROXIME AXETIL [Interacting]
     Active Substance: CEFUROXIME AXETIL
     Indication: Wound infection
  18. METHOTREXATE [Concomitant]
     Active Substance: METHOTREXATE
     Indication: Colitis
     Dosage: UNK, WEEKLY
     Dates: start: 20180620
  19. PREDNISONE [Concomitant]
     Active Substance: PREDNISONE
  20. CIPROFLOXACIN [Concomitant]
     Active Substance: CIPROFLOXACIN
     Indication: Wound infection
     Dates: start: 20180611
  21. CLINDAMYCIN [Concomitant]
     Active Substance: CLINDAMYCIN
     Indication: Wound infection
     Route: 065
     Dates: start: 20180611
  22. FLOVENT [Concomitant]
     Active Substance: FLUTICASONE PROPIONATE
     Indication: Pyoderma gangrenosum
  23. CLOBETASOL [Concomitant]
     Active Substance: CLOBETASOL
     Indication: Pyoderma gangrenosum

REACTIONS (7)
  - Wound infection [Recovering/Resolving]
  - Skin ulcer [Recovering/Resolving]
  - Drug ineffective [Not Recovered/Not Resolved]
  - Therapeutic response shortened [Unknown]
  - Blood pressure fluctuation [Unknown]
  - Drug interaction [Unknown]
  - Wound secretion [Not Recovered/Not Resolved]

NARRATIVE: CASE EVENT DATE: 20180101
